FAERS Safety Report 16690324 (Version 2)
Quarter: 2019Q3

REPORT INFORMATION
  Report Type: Report from Study
  Country: US (occurrence: US)
  Receive Date: 20190809
  Receipt Date: 20190911
  Transmission Date: 20191004
  Serious: Yes (Other)
  Sender: FDA-Public Use
  Company Number: PHEH2019US032564

PATIENT
  Sex: Female

DRUGS (1)
  1. PIQRAY [Suspect]
     Active Substance: ALPELISIB
     Indication: PRODUCT USED FOR UNKNOWN INDICATION
     Dosage: UNK
     Route: 048

REACTIONS (9)
  - Lip exfoliation [Unknown]
  - Skin exfoliation [Unknown]
  - Pyrexia [Unknown]
  - Neuropathy peripheral [Unknown]
  - Pain [Unknown]
  - White blood cell count decreased [Unknown]
  - Rash [Unknown]
  - Dehydration [Unknown]
  - Platelet count decreased [Unknown]
